FAERS Safety Report 7440555-6 (Version None)
Quarter: 2011Q2

REPORT INFORMATION
  Report Type: 
  Country: None (occurrence: None)
  Receive Date: 20110427
  Receipt Date: 20110425
  Transmission Date: 20111010
  Serious: Yes (Hospitalization)
  Sender: FDA-Public Use
  Company Number: A0922750A

PATIENT
  Age: 85 Year
  Sex: Female
  Weight: 63.2 kg

DRUGS (2)
  1. MELPHALAN [Suspect]
     Indication: MULTIPLE MYELOMA
     Dosage: 8MG PER DAY
     Route: 048
     Dates: start: 20110219, end: 20110225
  2. PREDNISONE [Suspect]
     Indication: MULTIPLE MYELOMA
     Dosage: 60MG THREE TIMES PER DAY
     Route: 048
     Dates: start: 20110219, end: 20110225

REACTIONS (2)
  - PYREXIA [None]
  - PANCYTOPENIA [None]
